FAERS Safety Report 10339471 (Version 2)
Quarter: 2014Q4

REPORT INFORMATION
  Report Type: Report from Study
  Country: CA (occurrence: CA)
  Receive Date: 20140724
  Receipt Date: 20141009
  Transmission Date: 20150528
  Serious: Yes (Hospitalization)
  Sender: FDA-Public Use
  Company Number: CA-AMGEN-CANSP2014054300

PATIENT
  Age: 84 Year
  Sex: Male

DRUGS (1)
  1. SENSIPAR [Suspect]
     Active Substance: CINACALCET HYDROCHLORIDE
     Indication: CHRONIC KIDNEY DISEASE
     Dosage: 30 MG, QD
     Route: 065
     Dates: start: 20070101

REACTIONS (5)
  - Skin discolouration [Not Recovered/Not Resolved]
  - Infection [Not Recovered/Not Resolved]
  - Limb discomfort [Not Recovered/Not Resolved]
  - Leg amputation [Not Recovered/Not Resolved]
  - Inflammation [Not Recovered/Not Resolved]

NARRATIVE: CASE EVENT DATE: 201301
